FAERS Safety Report 25274767 (Version 2)
Quarter: 2025Q2

REPORT INFORMATION
  Report Type: Spontaneous
  Country: IN (occurrence: IN)
  Receive Date: 20250506
  Receipt Date: 20250626
  Transmission Date: 20250716
  Serious: Yes (Hospitalization)
  Sender: PFIZER
  Company Number: IN-PFIZER INC-PV202400169454

PATIENT
  Age: 42 Year
  Sex: Female
  Weight: 55.3 kg

DRUGS (4)
  1. LORLATINIB [Suspect]
     Active Substance: LORLATINIB
     Indication: Lung cancer metastatic
     Dosage: 100 MG, 1X/DAY
     Route: 048
  2. LORLATINIB [Suspect]
     Active Substance: LORLATINIB
     Dosage: 100 MG, 1X/DAY (ONCE DAILY)
     Route: 048
     Dates: start: 20241113
  3. CARBOPLATIN [Concomitant]
     Active Substance: CARBOPLATIN
     Dates: start: 20241114
  4. ZOLEDRONIC ACID [Concomitant]
     Active Substance: ZOLEDRONIC ACID
     Dates: start: 20250422

REACTIONS (13)
  - Iron deficiency [Unknown]
  - Cholelithiasis [Unknown]
  - Cholecystitis [Unknown]
  - Gallbladder enlargement [Unknown]
  - Hepatosplenomegaly [Unknown]
  - Bile duct stone [Unknown]
  - Ovarian cyst [Unknown]
  - Endometriosis [Unknown]
  - Haemorrhagic cyst [Unknown]
  - Heart rate increased [Not Recovered/Not Resolved]
  - Alanine aminotransferase increased [Unknown]
  - Aspartate aminotransferase increased [Unknown]
  - Weight increased [Unknown]

NARRATIVE: CASE EVENT DATE: 20241223
